FAERS Safety Report 5086375-1 (Version None)
Quarter: 2006Q3

REPORT INFORMATION
  Report Type: 
  Country: None (occurrence: None)
  Receive Date: 20060703
  Receipt Date: 20060316
  Transmission Date: 20061208
  Serious: No
  Sender: FDA-Public Use
  Company Number: 2006S1002284

PATIENT
  Age: 38 Year
  Sex: Male
  Weight: 71.6683 kg

DRUGS (8)
  1. CLOZAPINE [Suspect]
     Indication: SCHIZOPHRENIA
     Dosage: SEE IMAGE
     Route: 048
  2. BENZTROPINE MESYLATE [Concomitant]
  3. CHLORPROMAZINE [Concomitant]
  4. DOCUSATE SODIUM [Concomitant]
  5. FLUPHENAZINE [Concomitant]
  6. LEVOTHYROXINE SODIUM [Concomitant]
  7. LITHIUM CARBONATE [Concomitant]
  8. LORAZEPAM [Concomitant]

REACTIONS (1)
  - LEUKOPENIA [None]
